FAERS Safety Report 24900110 (Version 2)
Quarter: 2025Q2

REPORT INFORMATION
  Report Type: Spontaneous
  Country: US (occurrence: US)
  Receive Date: 20250129
  Receipt Date: 20250428
  Transmission Date: 20250717
  Serious: Yes (Other)
  Sender: BAYER HEALTHCARE PHARMACEUTICALS INC.
  Company Number: US-BAYER-2025A011528

PATIENT
  Age: 49 Year
  Sex: Male

DRUGS (1)
  1. JIVI [Suspect]
     Active Substance: DAMOCTOCOG ALFA PEGOL
     Indication: Factor VIII deficiency
     Dosage: JIVI 3000/ INFUSE 3500 UNITS TWICE PER WEEK
     Route: 042
     Dates: start: 202405

REACTIONS (1)
  - Pain [None]

NARRATIVE: CASE EVENT DATE: 20241224
